FAERS Safety Report 24255712 (Version 2)
Quarter: 2024Q4

REPORT INFORMATION
  Report Type: Report from Study
  Country: VN (occurrence: VN)
  Receive Date: 20240827
  Receipt Date: 20241014
  Transmission Date: 20250115
  Serious: Yes (Other)
  Sender: INCYTE
  Company Number: VN-002147023-NVSC2024VN171401

PATIENT

DRUGS (2)
  1. RUXOLITINIB [Suspect]
     Active Substance: RUXOLITINIB
     Indication: Myelofibrosis
     Dosage: 15 MG, 1 TABLET/TIME TWICE DAILY
     Route: 048
     Dates: start: 20240820
  2. RUXOLITINIB [Suspect]
     Active Substance: RUXOLITINIB
     Dosage: 15 MG, 1 TABLET/TIME TWICE DAILY
     Route: 048
     Dates: start: 20241008

REACTIONS (3)
  - Chronic hepatitis B [Unknown]
  - Hypertension [Unknown]
  - Hyperuricaemia [Unknown]
